FAERS Safety Report 10952120 (Version 1)
Quarter: 2015Q1

REPORT INFORMATION
  Report Type: Spontaneous
  Country: US (occurrence: None)
  Receive Date: 20150323
  Receipt Date: 20150323
  Transmission Date: 20150721
  Serious: Yes (Other)
  Sender: FDA-Public Use
  Company Number: ADR-2015-00516

PATIENT
  Age: 29 Year
  Sex: Female

DRUGS (1)
  1. BACLOFEN INTRATHECAL (2000 MCG/ML) [Suspect]
     Active Substance: BACLOFEN
     Indication: MUSCLE SPASTICITY

REACTIONS (5)
  - Skin burning sensation [None]
  - Pruritus [None]
  - Device damage [None]
  - Muscle spasticity [None]
  - Condition aggravated [None]

NARRATIVE: CASE EVENT DATE: 20150306
